FAERS Safety Report 9500839 (Version 2)
Quarter: 2014Q1

REPORT INFORMATION
  Report Type: Spontaneous
  Country: US (occurrence: US)
  Receive Date: 20130905
  Receipt Date: 20140331
  Transmission Date: 20141002
  Serious: Yes (Death, Hospitalization)
  Sender: FDA-Public Use
  Company Number: US-B.I. PHARMACEUTICALS,INC./RIDGEFIELD-2013-BI-27292BP

PATIENT
  Sex: Male
  Weight: 90.72 kg

DRUGS (4)
  1. PRADAXA [Suspect]
     Indication: ATRIAL FIBRILLATION
     Route: 065
     Dates: start: 201109, end: 201212
  2. CARVEDILOL [Concomitant]
     Route: 065
     Dates: start: 2005, end: 2012
  3. FUROSEMIDE [Concomitant]
     Route: 065
     Dates: start: 2005, end: 2012
  4. KLOR-CON [Concomitant]
     Route: 065
     Dates: start: 2005, end: 2012

REACTIONS (1)
  - Gastrointestinal haemorrhage [Fatal]
